FAERS Safety Report 12296100 (Version 2)
Quarter: 2016Q2

REPORT INFORMATION
  Report Type: Report from Study
  Country: JP (occurrence: JP)
  Receive Date: 20160422
  Receipt Date: 20160506
  Transmission Date: 20160815
  Serious: Yes (Other)
  Sender: FDA-Public Use
  Company Number: JP-009507513-1604JPN014130

PATIENT
  Age: 64 Year
  Sex: Female

DRUGS (5)
  1. REBETOL [Suspect]
     Active Substance: RIBAVIRIN
     Indication: HEPATITIS C
     Dosage: FOR 24WEEKS REDUCED DOSE OF 200-600 MG/DAY BASED ON THE PATIENT^S BODYWEIGHT (200 MG/DAY FOR PATIENT
     Route: 048
  2. MYCOPHENOLATE MOFETIL. [Concomitant]
     Active Substance: MYCOPHENOLATE MOFETIL
     Indication: IMMUNOSUPPRESSION
     Dosage: DAILY DOSAGE UNKNOWN
     Route: 065
  3. CYCLOSPORINE. [Concomitant]
     Active Substance: CYCLOSPORINE
     Indication: IMMUNOSUPPRESSION
     Dosage: DOSE WAS REDUCED TO 25% OF THE ORIGINAL DOSE, AND THE DOSE WAS ADJUSTED TO MAINTAIN A TROUGH LEVEL O
     Route: 065
  4. PEGINTRON [Suspect]
     Active Substance: PEGINTERFERON ALFA-2B
     Indication: HEPATITIS C
     Dosage: 1.5 MICROGRAM PER KILOGRAM, QW, FOR 24WEEKS
     Route: 058
  5. TELAVIC [Suspect]
     Active Substance: TELAPREVIR
     Indication: HEPATITIS C
     Dosage: 500 MG, TID, THREE TIMES A DAY, AFTER EACH MEAL(TOTAL DAILY DOSE OF 1500 MG/DAY)
     Route: 048

REACTIONS (1)
  - Transplant dysfunction [Recovering/Resolving]
